FAERS Safety Report 7264514-1 (Version None)
Quarter: 2011Q1

REPORT INFORMATION
  Report Type: 
  Country: None (occurrence: None)
  Receive Date: 20110131
  Receipt Date: 20110126
  Transmission Date: 20110831
  Serious: No
  Sender: FDA-Public Use
  Company Number: US-PFIZER INC-2011019223

PATIENT
  Sex: Male
  Weight: 73.469 kg

DRUGS (10)
  1. LIPITOR [Suspect]
     Indication: BLOOD CHOLESTEROL INCREASED
     Dosage: 20 MG, 3X/WEEK
     Route: 048
     Dates: start: 20101201, end: 20110101
  2. CRESTOR [Suspect]
     Dosage: UNK
     Route: 048
     Dates: start: 20100101, end: 20100101
  3. ACETYLSALICYLIC ACID [Concomitant]
     Indication: ANTICOAGULANT THERAPY
     Dosage: 81 MG, 1X/DAY
     Route: 048
  4. LEXAPRO [Concomitant]
     Indication: ANTIDEPRESSANT THERAPY
     Dosage: 10 MG, 1X/DAY
     Route: 048
     Dates: start: 20010101
  5. ZETIA [Suspect]
     Dosage: UNK
     Route: 048
     Dates: start: 20100101, end: 20100101
  6. WELCHOL [Suspect]
     Dosage: UNK
     Route: 048
     Dates: start: 20100101, end: 20100101
  7. PLAVIX [Concomitant]
     Indication: ANTICOAGULANT THERAPY
     Dosage: 75 MG, 1X/DAY
     Route: 048
  8. NIASPAN [Suspect]
     Dosage: UNK
     Route: 048
     Dates: start: 20100101, end: 20100101
  9. IMDUR [Concomitant]
     Indication: HYPERTENSION
     Dosage: 30 MG, 1X/DAY
     Route: 048
  10. NORVASC [Concomitant]
     Indication: HYPERTENSION
     Dosage: 10 MG, 1X/DAY
     Route: 048

REACTIONS (5)
  - CHILLS [None]
  - MYALGIA [None]
  - MALAISE [None]
  - INFLUENZA [None]
  - PYREXIA [None]
